FAERS Safety Report 23447665 (Version 1)
Quarter: 2024Q1

REPORT INFORMATION
  Report Type: Spontaneous
  Country: US (occurrence: US)
  Receive Date: 20240126
  Receipt Date: 20240126
  Transmission Date: 20240410
  Serious: Yes (Hospitalization)
  Sender: FDA-Public Use
  Company Number: US-NOVOPROD-1166033

PATIENT
  Age: 52 Year
  Sex: Female

DRUGS (1)
  1. WEGOVY [Suspect]
     Active Substance: SEMAGLUTIDE
     Indication: Weight decreased
     Dosage: UNK
     Route: 058
     Dates: start: 202305

REACTIONS (5)
  - Intestinal obstruction [Unknown]
  - Dehydration [Unknown]
  - Acute kidney injury [Unknown]
  - Malaise [Unknown]
  - Eructation [Unknown]

NARRATIVE: CASE EVENT DATE: 20230501
